FAERS Safety Report 21015521 (Version 2)
Quarter: 2022Q3

REPORT INFORMATION
  Report Type: Report from Study
  Country: JP (occurrence: JP)
  Receive Date: 20220628
  Receipt Date: 20220829
  Transmission Date: 20221026
  Serious: Yes (Hospitalization, Other)
  Sender: FDA-Public Use
  Company Number: JP-ONO-2022JP017403

PATIENT
  Age: 63 Year
  Sex: Male
  Weight: 54 kg

DRUGS (5)
  1. ETELCALCETIDE [Suspect]
     Active Substance: ETELCALCETIDE
     Indication: Hyperparathyroidism secondary
     Dosage: 5 MILLIGRAM, Q56H
     Route: 010
     Dates: start: 20190103, end: 20190302
  2. ROCALTROL [Concomitant]
     Active Substance: CALCITRIOL
     Dosage: 1 MICROGRAM, Q56H
     Route: 065
     Dates: start: 20181115
  3. BIXALOMER [Concomitant]
     Active Substance: BIXALOMER
     Dosage: 750 MILLIGRAM, QD
     Route: 048
     Dates: end: 20220330
  4. BIXALOMER [Concomitant]
     Active Substance: BIXALOMER
     Dosage: 1000 MILLIGRAM, QD
     Route: 048
     Dates: start: 20211216, end: 20220105
  5. CALCIUM CARBONATE [Concomitant]
     Active Substance: CALCIUM CARBONATE
     Dosage: 3000 MILLIGRAM, QD
     Route: 048
     Dates: start: 20190312, end: 20190506

REACTIONS (3)
  - Pneumonia [Recovered/Resolved]
  - Arteriosclerosis coronary artery [Recovered/Resolved]
  - Cardiac failure [Recovering/Resolving]

NARRATIVE: CASE EVENT DATE: 20220115
